FAERS Safety Report 11670064 (Version 1)
Quarter: 2015Q4

REPORT INFORMATION
  Report Type: Spontaneous
  Country: BR (occurrence: BR)
  Receive Date: 20151027
  Receipt Date: 20151027
  Transmission Date: 20160304
  Serious: Yes (Hospitalization)
  Sender: FDA-Public Use
  Company Number: BR-GLAXOSMITHKLINE-BR2015GSK152792

PATIENT
  Age: 3 Year
  Sex: Female
  Weight: 15 kg

DRUGS (1)
  1. BECLOSOL [Suspect]
     Active Substance: BECLOMETHASONE DIPROPIONATE
     Indication: RHINITIS ALLERGIC
     Dosage: 1 DF, UNK
     Dates: start: 20151021, end: 20151021

REACTIONS (5)
  - Drug administered to patient of inappropriate age [Unknown]
  - Pharyngitis [Unknown]
  - Cough [Unknown]
  - Dyspnoea [Unknown]
  - Oxygen saturation decreased [Unknown]
